FAERS Safety Report 12894217 (Version 3)
Quarter: 2017Q4

REPORT INFORMATION
  Report Type: Spontaneous
  Country: US (occurrence: US)
  Receive Date: 20161028
  Receipt Date: 20171011
  Transmission Date: 20180320
  Serious: Yes (Hospitalization, Other)
  Sender: FDA-Public Use
  Company Number: US-DSJP-DSU-2016-128286

PATIENT

DRUGS (1)
  1. AZOR [Suspect]
     Active Substance: AMLODIPINE BESYLATE\OLMESARTAN MEDOXOMIL
     Indication: HYPERTENSION
     Dosage: 10/40 MG, QD
     Route: 048
     Dates: start: 2012, end: 2016

REACTIONS (10)
  - Crohn^s disease [Not Recovered/Not Resolved]
  - Gluten sensitivity [Unknown]
  - Peptic ulcer [Unknown]
  - Dizziness [Unknown]
  - Gastrointestinal haemorrhage [Not Recovered/Not Resolved]
  - Acute kidney injury [Unknown]
  - Malabsorption [Not Recovered/Not Resolved]
  - Irritable bowel syndrome [Unknown]
  - Gastrointestinal bacterial overgrowth [Unknown]
  - Diverticulitis [Unknown]

NARRATIVE: CASE EVENT DATE: 2012
